FAERS Safety Report 14149147 (Version 1)
Quarter: 2017Q4

REPORT INFORMATION
  Report Type: Spontaneous
  Country: US (occurrence: None)
  Receive Date: 20171101
  Receipt Date: 20171101
  Transmission Date: 20180321
  Serious: No
  Sender: FDA-Public Use
  Company Number: None

PATIENT
  Sex: Female
  Weight: 65.32 kg

DRUGS (11)
  1. LOSARTAN POTASSIUM. [Concomitant]
     Active Substance: LOSARTAN POTASSIUM
  2. RANITIDINE. [Concomitant]
     Active Substance: RANITIDINE
  3. PRAVASTATIN SODIUM. [Concomitant]
     Active Substance: PRAVASTATIN SODIUM
  4. VENLAFAXINE [Concomitant]
     Active Substance: VENLAFAXINE HYDROCHLORIDE
  5. XARELTO [Concomitant]
     Active Substance: RIVAROXABAN
  6. TRAMADOL. [Concomitant]
     Active Substance: TRAMADOL
  7. PANTOPRAZOLE [Concomitant]
     Active Substance: PANTOPRAZOLE
  8. OXYCODONE HCL 5MG TABLET [Suspect]
     Active Substance: OXYCODONE
     Indication: ARTHRALGIA
     Dosage: 1 EVERY 6 HRS AS NEEDED FOR PAIN
     Dates: start: 20170925, end: 20171013
  9. HYDROCHLOROTHIAZIDE. [Concomitant]
     Active Substance: HYDROCHLOROTHIAZIDE
  10. TYENOL [Concomitant]
  11. PROPRANOLAL [Concomitant]

REACTIONS (5)
  - Pruritus [None]
  - Rash [None]
  - Pain [None]
  - Rash erythematous [None]
  - Middle insomnia [None]

NARRATIVE: CASE EVENT DATE: 2017
